FAERS Safety Report 5442969-2 (Version None)
Quarter: 2007Q3

REPORT INFORMATION
  Report Type: 
  Country: None (occurrence: None)
  Receive Date: 20070905
  Receipt Date: 20070903
  Transmission Date: 20080115
  Serious: Yes (Hospitalization)
  Sender: FDA-Public Use
  Company Number: FR-BRISTOL-MYERS SQUIBB COMPANY-13896436

PATIENT
  Age: 87 Year
  Sex: Female

DRUGS (2)
  1. APROVEL TABS 150 MG [Suspect]
     Route: 048
  2. PAROXETINE HCL [Suspect]
     Route: 048

REACTIONS (2)
  - BLOOD OSMOLARITY INCREASED [None]
  - DEHYDRATION [None]
